FAERS Safety Report 8388580-5 (Version None)
Quarter: 2012Q2

REPORT INFORMATION
  Report Type: 
  Country: None (occurrence: None)
  Receive Date: 20120525
  Receipt Date: 20120510
  Transmission Date: 20120825
  Serious: No
  Sender: FDA-Public Use
  Company Number: US-ASTRAZENECA-2012SE30815

PATIENT
  Age: 62 Year
  Sex: Male

DRUGS (4)
  1. NEXIUM [Concomitant]
  2. HUMULIN R [Concomitant]
  3. CRESTOR [Suspect]
     Route: 048
  4. LANTUS [Concomitant]

REACTIONS (3)
  - SOMNOLENCE [None]
  - INTENTIONAL DRUG MISUSE [None]
  - BLOOD GLUCOSE INCREASED [None]
